FAERS Safety Report 11229092 (Version 5)
Quarter: 2022Q1

REPORT INFORMATION
  Report Type: Spontaneous
  Country: US (occurrence: US)
  Receive Date: 20150630
  Receipt Date: 20220218
  Transmission Date: 20220423
  Serious: Yes (Other)
  Sender: FDA-Public Use
  Company Number: US-PFIZER INC-2015034689

PATIENT
  Age: 67 Year
  Sex: Female
  Weight: 72 kg

DRUGS (7)
  1. LYRICA [Suspect]
     Active Substance: PREGABALIN
     Indication: Neuritis
     Dosage: 150 MG, 3X/DAY
     Route: 048
     Dates: start: 2010
  2. LYRICA [Suspect]
     Active Substance: PREGABALIN
     Indication: Arthropathy
     Dosage: 150 MG, 3X/DAY, (TAKE 1 CAPSULE ORAL THREE TIMES A DAY)
     Route: 048
  3. LYRICA [Suspect]
     Active Substance: PREGABALIN
     Indication: Neck pain
  4. LYRICA [Suspect]
     Active Substance: PREGABALIN
     Indication: Back pain
  5. LYRICA [Suspect]
     Active Substance: PREGABALIN
     Indication: Post laminectomy syndrome
  6. LYRICA [Suspect]
     Active Substance: PREGABALIN
     Indication: Intervertebral disc degeneration
  7. LYRICA [Suspect]
     Active Substance: PREGABALIN
     Indication: Fibromyalgia

REACTIONS (3)
  - Autoimmune disorder [Unknown]
  - Nasopharyngitis [Recovering/Resolving]
  - Nasal congestion [Recovering/Resolving]

NARRATIVE: CASE EVENT DATE: 20150621
